FAERS Safety Report 21327967 (Version 1)
Quarter: 2022Q3

REPORT INFORMATION
  Report Type: Other
  Country: CH (occurrence: CH)
  Receive Date: 20220913
  Receipt Date: 20220913
  Transmission Date: 20221026
  Serious: Yes (Other)
  Sender: FDA-Public Use
  Company Number: CH-ASTELLAS-2022US032294

PATIENT
  Age: 46 Year
  Sex: Male

DRUGS (6)
  1. PROGRAF [Suspect]
     Active Substance: TACROLIMUS
     Indication: Renal and pancreas transplant
     Dosage: 3 MG IN THE MORNING AND 1.5 MG IN THE EVENING, TWICE DAILY
     Route: 048
  2. MYFORTIC [Suspect]
     Active Substance: MYCOPHENOLATE SODIUM
     Indication: Renal and pancreas transplant
     Route: 048
  3. ASS CARDIO SPIRIG [Concomitant]
     Indication: Product used for unknown indication
     Dosage: 100 MG, ONCE DAILY (1-0-0-0)
     Route: 048
  4. ASS CARDIO SPIRIG [Concomitant]
     Dosage: UNK UNK, UNKNOWN FREQ. (RESTARTED)
     Route: 048
  5. ESOMEPRAZOLE [Concomitant]
     Active Substance: ESOMEPRAZOLE
     Indication: Product used for unknown indication
     Dosage: UNK UNK, AS NEEDED (IN RESERVE)
     Route: 048
  6. ESOMEPRAZOLE [Concomitant]
     Active Substance: ESOMEPRAZOLE
     Dosage: UNK UNK, UNKNOWN FREQ. (RESTARTED)
     Route: 048

REACTIONS (3)
  - Major depression [Not Recovered/Not Resolved]
  - Apathy [Unknown]
  - Off label use [Unknown]
